FAERS Safety Report 24986072 (Version 1)
Quarter: 2025Q1

REPORT INFORMATION
  Report Type: Spontaneous
  Country: JP (occurrence: JP)
  Receive Date: 20250219
  Receipt Date: 20250219
  Transmission Date: 20250409
  Serious: Yes (Hospitalization)
  Sender: DAIICHI
  Company Number: JP-DSJP-DS-2025-123297-JP

PATIENT
  Age: 77 Year
  Sex: Female
  Weight: 74 kg

DRUGS (28)
  1. EDOXABAN TOSYLATE [Suspect]
     Active Substance: EDOXABAN TOSYLATE
     Indication: Product used for unknown indication
     Dosage: 60 MG, QD
     Route: 048
  2. KEYTRUDA [Suspect]
     Active Substance: PEMBROLIZUMAB
     Indication: Chemotherapy
     Route: 065
  3. AMLODIPINE BESYLATE [Concomitant]
     Active Substance: AMLODIPINE BESYLATE
     Indication: Product used for unknown indication
     Dosage: 2.5 MG, QD
     Route: 048
  4. ROSUVASTATIN CALCIUM [Concomitant]
     Active Substance: ROSUVASTATIN CALCIUM
     Indication: Product used for unknown indication
     Dosage: 2.5 MG, QD
     Route: 065
  5. LANSOPRAZOLE [Concomitant]
     Active Substance: LANSOPRAZOLE
     Indication: Product used for unknown indication
     Dosage: 15 MG, QD
     Route: 048
  6. PREDNISOLONE [Concomitant]
     Active Substance: PREDNISOLONE
     Indication: Product used for unknown indication
     Route: 048
  7. PREDNISOLONE [Concomitant]
     Active Substance: PREDNISOLONE
     Route: 048
  8. PREDNISOLONE [Concomitant]
     Active Substance: PREDNISOLONE
     Route: 048
  9. PREDNISOLONE [Concomitant]
     Active Substance: PREDNISOLONE
     Route: 048
  10. PREDNISOLONE [Concomitant]
     Active Substance: PREDNISOLONE
     Route: 048
  11. PREDNISOLONE [Concomitant]
     Active Substance: PREDNISOLONE
     Route: 048
  12. PREDNISOLONE [Concomitant]
     Active Substance: PREDNISOLONE
     Route: 048
  13. PREDNISOLONE [Concomitant]
     Active Substance: PREDNISOLONE
     Route: 048
  14. PREDNISOLONE [Concomitant]
     Active Substance: PREDNISOLONE
     Route: 048
  15. PREDNISOLONE [Concomitant]
     Active Substance: PREDNISOLONE
     Route: 048
  16. PREDNISOLONE [Concomitant]
     Active Substance: PREDNISOLONE
     Route: 048
  17. SACUBITRIL\VALSARTAN [Concomitant]
     Active Substance: SACUBITRIL\VALSARTAN
     Indication: Product used for unknown indication
     Route: 048
  18. CARVEDILOL [Concomitant]
     Active Substance: CARVEDILOL
     Indication: Product used for unknown indication
     Route: 048
  19. CARVEDILOL [Concomitant]
     Active Substance: CARVEDILOL
     Route: 048
  20. SPIRONOLACTONE [Concomitant]
     Active Substance: SPIRONOLACTONE
     Indication: Product used for unknown indication
     Route: 048
  21. EMPAGLIFLOZIN [Concomitant]
     Active Substance: EMPAGLIFLOZIN
     Indication: Product used for unknown indication
     Route: 048
  22. SULFAMETHOXAZOLE AND TRIMETHOPRIM [Concomitant]
     Active Substance: SULFAMETHOXAZOLE\TRIMETHOPRIM
     Indication: Product used for unknown indication
     Route: 048
  23. ALENDRONATE [Concomitant]
     Active Substance: ALENDRONATE SODIUM
     Indication: Product used for unknown indication
     Dosage: 35 MG, ONCE EVERY 1 WK
     Route: 048
  24. MYCOPHENOLATE MOFETIL [Concomitant]
     Active Substance: MYCOPHENOLATE MOFETIL
     Indication: Autoimmune myocarditis
     Route: 048
  25. MYCOPHENOLATE MOFETIL [Concomitant]
     Active Substance: MYCOPHENOLATE MOFETIL
     Route: 048
  26. MYCOPHENOLATE MOFETIL [Concomitant]
     Active Substance: MYCOPHENOLATE MOFETIL
     Route: 048
  27. MYCOPHENOLATE MOFETIL [Concomitant]
     Active Substance: MYCOPHENOLATE MOFETIL
     Route: 048
  28. DAPAGLIFLOZIN PROPANEDIOL [Concomitant]
     Active Substance: DAPAGLIFLOZIN PROPANEDIOL
     Indication: Product used for unknown indication
     Route: 065

REACTIONS (4)
  - Myasthenia gravis [Recovering/Resolving]
  - Autoimmune myocarditis [Recovering/Resolving]
  - Full blood count decreased [Unknown]
  - Cytomegalovirus enterocolitis [Unknown]
